FAERS Safety Report 18394585 (Version 1)
Quarter: 2020Q4

REPORT INFORMATION
  Report Type: Spontaneous
  Country: FR (occurrence: FR)
  Receive Date: 20201017
  Receipt Date: 20201017
  Transmission Date: 20210114
  Serious: Yes (Hospitalization)
  Sender: FDA-Public Use
  Company Number: NVSC2020FR275324

PATIENT
  Age: 58 Year
  Sex: Male
  Weight: 69 kg

DRUGS (2)
  1. EXJADE [Suspect]
     Active Substance: DEFERASIROX
     Indication: HAEMOCHROMATOSIS
     Dosage: 1.5 G
     Route: 048
     Dates: start: 201608
  2. EXJADE [Suspect]
     Active Substance: DEFERASIROX
     Dosage: UNK
     Route: 048

REACTIONS (3)
  - Jaundice cholestatic [Recovered/Resolved]
  - Gamma-glutamyltransferase increased [Unknown]
  - Lithiasis [Recovered/Resolved]

NARRATIVE: CASE EVENT DATE: 201909
